FAERS Safety Report 8011798-8 (Version None)
Quarter: 2011Q4

REPORT INFORMATION
  Report Type: 
  Country: None (occurrence: None)
  Receive Date: 20111228
  Receipt Date: 20111220
  Transmission Date: 20120403
  Serious: Yes (Death, Other)
  Sender: FDA-Public Use
  Company Number: JP-CEPHALON-2011004695

PATIENT
  Sex: Female
  Weight: 42 kg

DRUGS (6)
  1. ETOPOSIDE [Concomitant]
     Dates: start: 20110405, end: 20110406
  2. PAROXETINE HYDROCHLORIDE [Concomitant]
     Dates: start: 20110316
  3. BENDAMUSTINE HCL [Suspect]
     Indication: B-CELL LYMPHOMA
     Route: 042
     Dates: start: 20110202, end: 20110602
  4. METENOLONE ACETATE [Concomitant]
     Dates: start: 20110311
  5. RITUXIMAB [Suspect]
     Indication: B-CELL LYMPHOMA
     Route: 042
     Dates: start: 20110202, end: 20110601
  6. SOBUZOXANE [Concomitant]
     Dates: start: 20110405, end: 20110406

REACTIONS (6)
  - PLATELET COUNT DECREASED [None]
  - BLOOD POTASSIUM DECREASED [None]
  - LYMPHOCYTE COUNT DECREASED [None]
  - NEUTROPHIL COUNT DECREASED [None]
  - PROTEIN TOTAL DECREASED [None]
  - B-CELL LYMPHOMA [None]
